FAERS Safety Report 4446024-X (Version None)
Quarter: 2004Q3

REPORT INFORMATION
  Report Type: 
  Country: None (occurrence: None)
  Receive Date: 20040910
  Receipt Date: 20031107
  Transmission Date: 20050211
  Serious: Yes (Life-Threatening, Other)
  Sender: FDA-Public Use
  Company Number: JP-GLAXOSMITHKLINE-B0314641A

PATIENT
  Age: 70 Year
  Sex: Female
  Weight: 51 kg

DRUGS (11)
  1. ZOVIRAX [Suspect]
     Indication: HERPES ZOSTER
     Dosage: 800MG FIVE TIMES PER DAY
     Route: 048
     Dates: start: 20031030, end: 20031101
  2. PRECIPITATED CALCIUM CARBONATE [Concomitant]
     Dosage: 1500MG PER DAY
     Route: 048
     Dates: end: 20031101
  3. SODIUM CARBONATE [Concomitant]
     Dosage: 3MG PER DAY
     Route: 048
     Dates: end: 20031101
  4. SPHERICAL ABSORBENT COAL [Concomitant]
     Dosage: 600MG PER DAY
     Route: 048
     Dates: end: 20031101
  5. NIFEDIPINE [Concomitant]
     Dosage: 80MG PER DAY
     Route: 048
     Dates: end: 20031101
  6. ATENOLOL [Concomitant]
     Dosage: 50MG PER DAY
     Route: 048
     Dates: end: 20031101
  7. FUROSEMIDE [Concomitant]
     Dosage: 20MG PER DAY
     Route: 048
     Dates: end: 20031101
  8. SIMVASTATIN [Concomitant]
     Dosage: 5MG PER DAY
     Route: 048
     Dates: end: 20031101
  9. FERROUS CITRATE [Concomitant]
     Dosage: 50MG PER DAY
     Route: 048
     Dates: end: 20031101
  10. KREMEZIN [Concomitant]
     Dosage: 6000MG PER DAY
     Route: 048
     Dates: end: 20031101
  11. JUSO-JO [Concomitant]
     Dosage: 3G PER DAY
     Route: 048
     Dates: end: 20031101

REACTIONS (7)
  - CONVULSION [None]
  - DEPRESSED LEVEL OF CONSCIOUSNESS [None]
  - NAUSEA [None]
  - OVERDOSE [None]
  - RESPIRATORY ARREST [None]
  - SUBARACHNOID HAEMORRHAGE [None]
  - VOMITING [None]
